FAERS Safety Report 4501293-2 (Version None)
Quarter: 2004Q4

REPORT INFORMATION
  Report Type: 
  Country: None (occurrence: None)
  Receive Date: 20041110
  Receipt Date: 20041027
  Transmission Date: 20050328
  Serious: Yes (Hospitalization)
  Sender: FDA-Public Use
  Company Number: 2003140347PL

PATIENT
  Age: 59 Year
  Sex: Female

DRUGS (6)
  1. CISPLATIN [Suspect]
     Indication: SMALL CELL LUNG CANCER STAGE UNSPECIFIED
     Dosage: 140 MG, DAY 1, CYCLIC, IV
     Route: 042
     Dates: start: 20020919, end: 20030129
  2. ETOPOSIDE [Suspect]
     Indication: SMALL CELL LUNG CANCER STAGE UNSPECIFIED
     Dosage: 175 MG, DAY 1-3, CYCLIC, IV
     Route: 042
     Dates: start: 20020919, end: 20030129
  3. FUROSEMIDE [Concomitant]
  4. POTASSIUM [Concomitant]
  5. LACTULOSE [Concomitant]
  6. FORMOTEROL (FORMOTEROL) [Concomitant]

REACTIONS (4)
  - ANAEMIA [None]
  - FATIGUE [None]
  - FEBRILE NEUTROPENIA [None]
  - THROMBOCYTOPENIA [None]
